FAERS Safety Report 18077399 (Version 1)
Quarter: 2020Q3

REPORT INFORMATION
  Report Type: Spontaneous
  Country: GR (occurrence: GR)
  Receive Date: 20200727
  Receipt Date: 20200727
  Transmission Date: 20201103
  Serious: Yes (Other)
  Sender: FDA-Public Use
  Company Number: GR-US-PROVELL PHARMACEUTICALS LLC-E2B_90078998

PATIENT
  Sex: Female

DRUGS (1)
  1. EUTHYROX [Suspect]
     Active Substance: LEVOTHYROXINE SODIUM
     Indication: PRODUCT USED FOR UNKNOWN INDICATION
     Dates: start: 202005

REACTIONS (1)
  - Blood thyroid stimulating hormone increased [Not Recovered/Not Resolved]

NARRATIVE: CASE EVENT DATE: 202006
